FAERS Safety Report 5284402-X (Version None)
Quarter: 2007Q1

REPORT INFORMATION
  Report Type: 
  Country: None (occurrence: None)
  Receive Date: 20070330
  Receipt Date: 20070330
  Transmission Date: 20070707
  Serious: Yes (Hospitalization)
  Sender: FDA-Public Use
  Company Number: None

PATIENT
  Age: 71 Year
  Sex: Male

DRUGS (3)
  1. MITOXANTRONE [Suspect]
     Indication: NON-HODGKIN'S LYMPHOMA
     Dosage: 12MG/M2
     Dates: start: 20070313
  2. FLUDARABINE [Suspect]
     Indication: NON-HODGKIN'S LYMPHOMA
     Dosage: 25MG/M2
     Dates: start: 20070313, end: 20070315
  3. RITUXAN [Concomitant]

REACTIONS (3)
  - POSTOPERATIVE WOUND INFECTION [None]
  - PYREXIA [None]
  - SEROMA [None]
